FAERS Safety Report 9524929 (Version 1)
Quarter: 2013Q3

REPORT INFORMATION
  Report Type: Spontaneous
  Country: JP (occurrence: JP)
  Receive Date: 20130916
  Receipt Date: 20130916
  Transmission Date: 20140515
  Serious: Yes (Hospitalization)
  Sender: FDA-Public Use
  Company Number: JP-ASTELLAS-2013JP009523

PATIENT
  Age: 61 Year
  Sex: Female
  Weight: 86 kg

DRUGS (12)
  1. PROGRAF [Suspect]
     Indication: MYASTHENIA GRAVIS
     Dosage: 3 MG, UID/QD
     Route: 048
     Dates: start: 20130502, end: 20130825
  2. ALLEGRA [Concomitant]
     Dosage: 60 MG, BID
     Route: 048
     Dates: start: 20120406
  3. PREDONINE                          /00016201/ [Concomitant]
     Indication: MYASTHENIA GRAVIS
     Dosage: 30 MG, UNKNOWN/D
     Route: 048
     Dates: start: 20120406, end: 20130730
  4. PREDONINE                          /00016201/ [Concomitant]
     Dosage: 14 MG, UID/QD
     Route: 048
     Dates: start: 20130731, end: 20130826
  5. PREDONINE                          /00016201/ [Concomitant]
     Dosage: 10 MG, UNKNOWN/D
     Route: 048
     Dates: start: 20130827
  6. TAKEPRON [Concomitant]
     Dosage: 15 MG, UID/QD
     Route: 065
     Dates: start: 20120406
  7. ALFAROL [Concomitant]
     Dosage: 0.25 UG, UID/QD
     Route: 048
     Dates: start: 20121130
  8. PLAVIX [Concomitant]
     Dosage: 75 MG, UID/QD
     Route: 048
     Dates: start: 20130501
  9. BAKTAR [Concomitant]
     Dosage: UNK
     Route: 048
     Dates: start: 20130802
  10. EQUA [Concomitant]
     Indication: TYPE 2 DIABETES MELLITUS
     Dosage: 50 MG, BID
     Route: 048
     Dates: start: 20130430
  11. MESTINON [Concomitant]
     Indication: MYASTHENIA GRAVIS
     Dosage: 60 MG, UID/QD
     Route: 048
     Dates: start: 20120406, end: 20130906
  12. SUREPOST [Concomitant]
     Indication: TYPE 2 DIABETES MELLITUS
     Dosage: 0.5 MG, TID
     Route: 048
     Dates: start: 20130524, end: 20130825

REACTIONS (1)
  - Glycosylated haemoglobin increased [Not Recovered/Not Resolved]
